FAERS Safety Report 22345576 (Version 1)
Quarter: 2023Q2

REPORT INFORMATION
  Report Type: Spontaneous
  Country: CN (occurrence: None)
  Receive Date: 20230519
  Receipt Date: 20230519
  Transmission Date: 20230722
  Serious: Yes (Other)
  Sender: FDA-Public Use
  Company Number: CN-ROCHE-3349966

PATIENT

DRUGS (8)
  1. GAZYVA [Suspect]
     Active Substance: OBINUTUZUMAB
     Indication: Follicular lymphoma
     Dosage: SUBSEQUENT DOSE RECEIVED ON 21/APR/2022, 1000 MG D8, 15 (CYCLE 1)/ OBINUTUZUMAB 1000 MG D1 (CYCLE 2
     Route: 042
     Dates: start: 20220406
  2. BENDAMUSTINE [Concomitant]
     Active Substance: BENDAMUSTINE
     Indication: Follicular lymphoma
     Dates: start: 20220421
  3. LENALIDOMIDE [Concomitant]
     Active Substance: LENALIDOMIDE
     Indication: Follicular lymphoma
     Dates: start: 20220406
  4. RITUXIMAB [Concomitant]
     Active Substance: RITUXIMAB
     Indication: Follicular lymphoma
     Dosage: SUBSEQUENT DOSE RECEIVED /DEC/2021, 15/FEB/2021
     Dates: start: 20211015
  5. CYCLOPHOSPHAMIDE [Concomitant]
     Active Substance: CYCLOPHOSPHAMIDE
  6. EPIRUBICIN [Concomitant]
     Active Substance: EPIRUBICIN
  7. VINDESINE [Concomitant]
     Active Substance: VINDESINE
  8. DEXAMETHASONE [Concomitant]
     Active Substance: DEXAMETHASONE

REACTIONS (8)
  - Renal failure [Recovering/Resolving]
  - Nausea [Unknown]
  - Vomiting [Unknown]
  - Chest discomfort [Unknown]
  - Decreased appetite [Unknown]
  - Abdominal distension [Unknown]
  - Weight increased [Unknown]
  - Hyperkalaemia [Unknown]
